FAERS Safety Report 8380167-3 (Version None)
Quarter: 2012Q2

REPORT INFORMATION
  Report Type: 
  Country: None (occurrence: None)
  Receive Date: 20120523
  Receipt Date: 20120514
  Transmission Date: 20120825
  Serious: Yes (Disabling)
  Sender: FDA-Public Use
  Company Number: AU-ASTRAZENECA-2012SE24993

PATIENT
  Age: 21 Year
  Sex: Male
  Weight: 65.8 kg

DRUGS (4)
  1. SEROQUEL [Suspect]
     Dosage: MORE THAN 800 MG PER DAY
     Route: 048
  2. SEROQUEL [Suspect]
     Indication: ANXIETY DISORDER
     Route: 048
  3. VALIUM [Concomitant]
  4. POT [Concomitant]

REACTIONS (2)
  - INTENTIONAL DRUG MISUSE [None]
  - TACHYCARDIA [None]
